FAERS Safety Report 5379550-X (Version None)
Quarter: 2007Q3

REPORT INFORMATION
  Report Type: 
  Country: None (occurrence: None)
  Receive Date: 20070703
  Receipt Date: 20070619
  Transmission Date: 20080115
  Serious: Yes (Hospitalization, Other)
  Sender: FDA-Public Use
  Company Number: 2007BI002113

PATIENT
  Age: 64 Year
  Sex: Male
  Weight: 51.2565 kg

DRUGS (2)
  1. AVONEX [Suspect]
     Indication: MULTIPLE SCLEROSIS
     Dosage: 30 UG; QW; IM
     Route: 030
     Dates: start: 19990301, end: 20030101
  2. AVONEX [Suspect]
     Indication: MULTIPLE SCLEROSIS
     Dosage: 30 UG; QW; IM
     Route: 030
     Dates: start: 20030101

REACTIONS (10)
  - CYSTITIS [None]
  - GAIT DISTURBANCE [None]
  - GASTROINTESTINAL DISORDER [None]
  - HEADACHE [None]
  - METASTASES TO BONE [None]
  - MUSCULAR WEAKNESS [None]
  - PAIN IN EXTREMITY [None]
  - POST PROCEDURAL COMPLICATION [None]
  - PROSTATE CANCER METASTATIC [None]
  - WEIGHT DECREASED [None]
